FAERS Safety Report 6988960-6 (Version None)
Quarter: 2010Q3

REPORT INFORMATION
  Report Type: 
  Country: None (occurrence: None)
  Receive Date: 20100916
  Receipt Date: 20090821
  Transmission Date: 20110219
  Serious: Yes (Other)
  Sender: FDA-Public Use
  Company Number: IE-PFIZER INC-2009208415

PATIENT
  Sex: Female

DRUGS (2)
  1. LYRICA [Suspect]
     Indication: BACK PAIN
     Dosage: 50 MG, 3X/DAY
     Route: 048
     Dates: start: 20090301, end: 20090314
  2. AMITRIPTYLINE [Concomitant]
     Indication: NEURALGIA
     Dosage: 10 MG, 1X/DAY, NOCTE
     Dates: start: 20080601

REACTIONS (3)
  - SEDATION [None]
  - SOMNOLENCE [None]
  - URINARY RETENTION [None]
